FAERS Safety Report 22595271 (Version 2)
Quarter: 2023Q2

REPORT INFORMATION
  Report Type: Report from Study
  Country: US (occurrence: US)
  Receive Date: 20230613
  Receipt Date: 20230620
  Transmission Date: 20230722
  Serious: Yes (Hospitalization)
  Sender: FDA-Public Use
  Company Number: US-MYLANLABS-2023M1060865

PATIENT
  Age: 43 Year
  Sex: Male

DRUGS (1)
  1. CLOZAPINE [Suspect]
     Active Substance: CLOZAPINE
     Indication: Product used for unknown indication
     Dosage: UNK
     Route: 065

REACTIONS (8)
  - Hospitalisation [Unknown]
  - High density lipoprotein decreased [Unknown]
  - Red cell distribution width increased [Unknown]
  - Blood alkaline phosphatase decreased [Unknown]
  - Anisocytosis [Unknown]
  - Glomerular filtration rate decreased [Unknown]
  - Blood creatinine increased [Unknown]
  - Blood triglycerides increased [Unknown]

NARRATIVE: CASE EVENT DATE: 20230405
